FAERS Safety Report 8408228-0 (Version None)
Quarter: 2012Q2

REPORT INFORMATION
  Report Type: 
  Country: None (occurrence: None)
  Receive Date: 20120604
  Receipt Date: 20120529
  Transmission Date: 20120825
  Serious: Yes (Hospitalization, Other)
  Sender: FDA-Public Use
  Company Number: US-ELI_LILLY_AND_COMPANY-US201205010121

PATIENT
  Sex: Male
  Weight: 88.889 kg

DRUGS (4)
  1. BYETTA [Suspect]
     Dosage: 10 UG, BID
     Route: 058
  2. METFORMIN HCL [Concomitant]
     Indication: TYPE 2 DIABETES MELLITUS
     Dosage: 1000 MG, BID
     Route: 048
  3. BYETTA [Suspect]
     Indication: TYPE 2 DIABETES MELLITUS
     Dosage: 5 UG, BID
     Route: 058
     Dates: start: 20070101
  4. ZOCOR [Concomitant]
     Dosage: 20 MG, QD
     Route: 048

REACTIONS (7)
  - DIVERTICULUM [None]
  - BACK PAIN [None]
  - ABDOMINAL PAIN [None]
  - RASH GENERALISED [None]
  - CYST [None]
  - WEIGHT DECREASED [None]
  - HEPATIC CYST [None]
